FAERS Safety Report 24564001 (Version 1)
Quarter: 2024Q4

REPORT INFORMATION
  Report Type: Spontaneous
  Country: FR (occurrence: FR)
  Receive Date: 20241030
  Receipt Date: 20241030
  Transmission Date: 20250115
  Serious: Yes (Other)
  Sender: BOEHRINGER INGELHEIM
  Company Number: None

PATIENT
  Age: 69 Year
  Sex: Male
  Weight: 77 kg

DRUGS (4)
  1. JARDIANCE [Suspect]
     Active Substance: EMPAGLIFLOZIN
     Indication: Type 2 diabetes mellitus
     Route: 048
     Dates: start: 20231030, end: 20241006
  2. METFORMINE BIOGARAN 500 mg, film coated tablet [Concomitant]
     Indication: Product used for unknown indication
  3. LIPOROSA 10 mg/10 mg, capsule [Concomitant]
     Indication: Product used for unknown indication
  4. TADALAFIL SANDOZ 5 mg, film coated tablet [Concomitant]
     Indication: Product used for unknown indication

REACTIONS (2)
  - Urinary tract infection [Recovered/Resolved]
  - Oedema genital [Recovered/Resolved]

NARRATIVE: CASE EVENT DATE: 20240606
